FAERS Safety Report 9281471 (Version 2)
Quarter: 2013Q2

REPORT INFORMATION
  Report Type: Spontaneous
  Country: IT (occurrence: IT)
  Receive Date: 20130509
  Receipt Date: 20130613
  Transmission Date: 20140414
  Serious: Yes (Hospitalization, Other)
  Sender: FDA-Public Use
  Company Number: IT-BRISTOL-MYERS SQUIBB COMPANY-18860494

PATIENT
  Age: 79 Year
  Sex: Female

DRUGS (6)
  1. COUMADIN TABS 5 MG [Suspect]
     Indication: CARDIAC VALVE PROSTHESIS USER
     Dosage: INTER:02MAY2013
     Route: 048
     Dates: start: 19990209
  2. POTASSIUM CANRENOATE [Concomitant]
  3. CATAPRESAN [Concomitant]
     Dosage: TABS
  4. FEMARA [Concomitant]
     Dosage: TABS
  5. LASIX [Concomitant]
     Dosage: TABS
  6. AMIODARONE [Concomitant]
     Dosage: TABS

REACTIONS (2)
  - Epistaxis [Recovered/Resolved]
  - Face injury [Unknown]
